FAERS Safety Report 7414899-8 (Version None)
Quarter: 2011Q2

REPORT INFORMATION
  Report Type: 
  Country: None (occurrence: None)
  Receive Date: 20110414
  Receipt Date: 20110407
  Transmission Date: 20111010
  Serious: Yes (Hospitalization, Other)
  Sender: FDA-Public Use
  Company Number: JP-GENZYME-THYM-1001729

PATIENT
  Age: 37 Year
  Sex: Female
  Weight: 42 kg

DRUGS (55)
  1. BROTIZOLAM [Concomitant]
     Indication: INSOMNIA
     Dosage: UNK
     Dates: start: 20090923, end: 20091104
  2. ACICLOVIR [Concomitant]
     Indication: INFECTION PROPHYLAXIS
     Dosage: UNK
     Dates: start: 20091029, end: 20091031
  3. CHLORPHENIRAMINE MALEATE [Concomitant]
     Indication: PRURITUS
     Dosage: UNK
     Dates: start: 20090925, end: 20090925
  4. CHLORPHENIRAMINE MALEATE [Concomitant]
     Dosage: UNK
     Dates: start: 20091012, end: 20091012
  5. HYDROCORTISONE SODIUM SUCCINATE [Concomitant]
     Dosage: UNK
     Dates: start: 20100205, end: 20100205
  6. METHOTREXATE [Concomitant]
     Indication: ACUTE MYELOID LEUKAEMIA
     Dosage: UNK
     Dates: start: 20090926, end: 20090926
  7. METHOTREXATE [Concomitant]
     Dosage: UNK
     Dates: start: 20091001, end: 20091001
  8. HYDROXYZINE HYDROCHLORIDE [Concomitant]
     Indication: INSOMNIA
     Dosage: UNK
     Dates: start: 20091006, end: 20091006
  9. TOSUFLOXACIN TOSILATE [Concomitant]
     Indication: INFECTION PROPHYLAXIS
     Dosage: UNK
     Dates: start: 20100115, end: 20100204
  10. ITRACONAZOLE [Concomitant]
     Indication: INFECTION PROPHYLAXIS
     Dosage: UNK
     Dates: start: 20100223, end: 20100309
  11. CHLORPHENIRAMINE MALEATE [Concomitant]
     Dosage: UNK
     Dates: start: 20091019, end: 20091019
  12. CHLORPHENIRAMINE MALEATE [Concomitant]
     Dosage: UNK
     Dates: start: 20100118, end: 20100118
  13. HYDROCORTISONE SODIUM SUCCINATE [Concomitant]
     Dosage: UNK
     Dates: start: 20100203, end: 20100203
  14. HYDROCORTISONE SODIUM SUCCINATE [Concomitant]
     Dosage: UNK
     Dates: start: 20100209, end: 20100209
  15. MAGNESIUM SULFATE [Concomitant]
     Indication: PROPHYLAXIS
     Dosage: UNK
     Dates: start: 20090928, end: 20091022
  16. HYDROXYZINE HYDROCHLORIDE [Concomitant]
     Dosage: UNK
     Dates: start: 20091014, end: 20091028
  17. GLYCERIN W [Concomitant]
     Indication: OEDEMA
     Dosage: UNK
     Dates: start: 20091017, end: 20091021
  18. BROTIZOLAM [Concomitant]
     Dosage: UNK
     Dates: start: 20100115, end: 20100310
  19. OMEPRAZOLE [Concomitant]
     Dosage: UNK
     Dates: start: 20100115, end: 20100309
  20. ACICLOVIR [Concomitant]
     Dosage: UNK
     Dates: start: 20100115, end: 20100309
  21. CHLORPHENIRAMINE MALEATE [Concomitant]
     Dosage: UNK
     Dates: start: 20091014, end: 20091014
  22. HYDROCORTISONE SODIUM SUCCINATE [Concomitant]
     Dosage: UNK
     Dates: start: 20100122, end: 20100122
  23. HYDROCORTISONE SODIUM SUCCINATE [Concomitant]
     Dosage: UNK
     Dates: start: 20100127, end: 20100127
  24. METHOTREXATE [Concomitant]
     Dosage: UNK
     Dates: start: 20090927, end: 20090927
  25. HYDROXYZINE HYDROCHLORIDE [Concomitant]
     Dosage: UNK
     Dates: start: 20091011, end: 20091011
  26. ACLARUBICIN HYDROCHLORIDE [Concomitant]
     Indication: ACUTE MYELOID LEUKAEMIA
     Dosage: UNK
     Dates: start: 20100119, end: 20100122
  27. VORICONAZOLE [Concomitant]
     Dosage: UNK
     Dates: start: 20100115, end: 20100221
  28. TACROLIMUS [Concomitant]
     Dosage: UNK
     Dates: start: 20090924, end: 20091023
  29. HYDROXYZINE PAMOATE [Concomitant]
     Indication: INSOMNIA
     Dosage: UNK
     Dates: start: 20100210, end: 20100309
  30. CHLORPHENIRAMINE MALEATE [Concomitant]
     Dosage: UNK
     Dates: start: 20091009, end: 20091009
  31. METHOTREXATE [Concomitant]
     Dosage: UNK
     Dates: start: 20091006, end: 20091006
  32. ZOLPIDEM [Concomitant]
     Dosage: UNK
     Dates: start: 20100115, end: 20100310
  33. VORICONAZOLE [Concomitant]
     Indication: INFECTION PROPHYLAXIS
     Dosage: UNK
     Dates: start: 20090923, end: 20091104
  34. URSODIOL [Concomitant]
     Dosage: UNK
     Dates: start: 20100115, end: 20100310
  35. TRAZODONE HCL [Concomitant]
     Indication: INSOMNIA
     Dosage: UNK
     Dates: start: 20091027, end: 20091103
  36. HYDROCORTISONE SODIUM SUCCINATE [Concomitant]
     Dosage: UNK
     Dates: start: 20091014, end: 20091014
  37. SULFAMETHOPRIM [Concomitant]
     Indication: INFECTION PROPHYLAXIS
     Dosage: UNK
     Dates: start: 20090921, end: 20100310
  38. URSODIOL [Concomitant]
     Indication: PROPHYLAXIS
     Dosage: UNK
     Dates: start: 20090923, end: 20091104
  39. TOSUFLOXACIN TOSILATE [Concomitant]
     Dosage: UNK
     Dates: start: 20100222, end: 20100310
  40. HYDROCORTISONE SODIUM SUCCINATE [Concomitant]
     Dosage: UNK
     Dates: start: 20100129, end: 20100129
  41. HYDROXYZINE HYDROCHLORIDE [Concomitant]
     Dosage: UNK
     Dates: start: 20091007, end: 20091007
  42. HYDROXYZINE HYDROCHLORIDE [Concomitant]
     Dosage: UNK
     Dates: start: 20100216, end: 20100221
  43. GRANISETRON HYDROCHLORIDE [Concomitant]
     Indication: ANTIEMETIC SUPPORTIVE CARE
     Dosage: UNK
     Dates: start: 20100119, end: 20100122
  44. TACROLIMUS [Concomitant]
     Indication: ACUTE MYELOID LEUKAEMIA
     Dosage: UNK
     Dates: start: 20091023, end: 20091031
  45. CHLORPHENIRAMINE MALEATE [Concomitant]
     Dosage: UNK
     Dates: start: 20091007, end: 20091007
  46. HYDROCORTISONE SODIUM SUCCINATE [Concomitant]
     Dosage: UNK
     Dates: start: 20091007, end: 20091007
  47. HYDROCORTISONE SODIUM SUCCINATE [Concomitant]
     Dosage: UNK
     Dates: start: 20100125, end: 20100125
  48. HYDROCORTISONE SODIUM SUCCINATE [Concomitant]
     Dosage: UNK
     Dates: start: 20100201, end: 20100201
  49. THYMOGLOBULIN [Suspect]
     Indication: BONE MARROW CONDITIONING REGIMEN
     Dosage: 100 MG, QD
     Route: 042
     Dates: start: 20090921, end: 20090921
  50. ZOLPIDEM [Concomitant]
     Indication: INSOMNIA
     Dosage: UNK
     Dates: start: 20090923, end: 20091104
  51. OMEPRAZOLE [Concomitant]
     Indication: PROPHYLAXIS AGAINST GASTROINTESTINAL ULCER
     Dosage: UNK
     Dates: start: 20090923, end: 20091104
  52. ACICLOVIR [Concomitant]
     Dosage: UNK
     Dates: start: 20090921, end: 20091028
  53. METHYLPREDNISOLONE SODIUM SUCCINATE [Concomitant]
     Indication: PREMEDICATION
     Dosage: UNK
     Dates: start: 20090921, end: 20090921
  54. HYDROCORTISONE SODIUM SUCCINATE [Concomitant]
     Indication: PRURITUS
     Dosage: UNK
     Dates: start: 20090925, end: 20090925
  55. CYTARABINE [Concomitant]
     Indication: ACUTE MYELOID LEUKAEMIA
     Dosage: UNK
     Dates: start: 20100118, end: 20100201

REACTIONS (9)
  - ACUTE GRAFT VERSUS HOST DISEASE IN SKIN [None]
  - PRURITUS [None]
  - ORAL DISORDER [None]
  - ACUTE MYELOID LEUKAEMIA RECURRENT [None]
  - HEADACHE [None]
  - PYREXIA [None]
  - NEUROPATHY PERIPHERAL [None]
  - OEDEMA [None]
  - TOOTHACHE [None]
